FAERS Safety Report 15352240 (Version 1)
Quarter: 2018Q3

REPORT INFORMATION
  Report Type: Spontaneous
  Country: JP (occurrence: JP)
  Receive Date: 20180905
  Receipt Date: 20180905
  Transmission Date: 20181010
  Serious: Yes (Other)
  Sender: FDA-Public Use
  Company Number: JP-BAYER-2018-164032

PATIENT
  Age: 58 Year
  Sex: Female

DRUGS (12)
  1. QUETIAPINE. [Suspect]
     Active Substance: QUETIAPINE
     Dosage: DAILY DOSE 300 MG
  2. AMLODIPINE [Concomitant]
     Active Substance: AMLODIPINE BESYLATE
     Dosage: 5 MG, QD
     Route: 048
  3. OMEPRAZOLE. [Concomitant]
     Active Substance: OMEPRAZOLE
     Dosage: 10 MG, QD
     Route: 048
  4. LITHIUM CARBONATE. [Concomitant]
     Active Substance: LITHIUM CARBONATE
     Dosage: 400 MG, QD
     Route: 048
  5. QUETIAPINE. [Suspect]
     Active Substance: QUETIAPINE
     Dosage: DAILY DOSE 100 MG
     Dates: start: 2015
  6. ADEMPAS [Suspect]
     Active Substance: RIOCIGUAT
     Indication: PULMONARY HYPERTENSION
  7. NITRAZEPAM [Concomitant]
     Active Substance: NITRAZEPAM
     Dosage: 5 MG, QD
     Route: 048
  8. SODIUM VALPROATE [Concomitant]
     Active Substance: VALPROATE SODIUM
     Dosage: DAILY DOSE 600 MG
  9. WARFARIN POTASSIUM [Concomitant]
     Active Substance: WARFARIN POTASSIUM
     Dosage: 3 MG, QD
     Route: 048
  10. SODIUM VALPROATE [Concomitant]
     Active Substance: VALPROATE SODIUM
     Dosage: DAILY DOSE 800 MG
  11. QUETIAPINE. [Suspect]
     Active Substance: QUETIAPINE
     Dosage: DAILY DOSE 200 MG
     Dates: start: 2015
  12. TOLVAPTAN [Concomitant]
     Active Substance: TOLVAPTAN

REACTIONS (3)
  - Pulmonary hypertension [None]
  - Pulmonary alveolar haemorrhage [None]
  - Bipolar disorder [None]

NARRATIVE: CASE EVENT DATE: 2015
